FAERS Safety Report 20803733 (Version 1)
Quarter: 2022Q2

REPORT INFORMATION
  Report Type: Report from Study
  Country: US (occurrence: US)
  Receive Date: 20220509
  Receipt Date: 20220509
  Transmission Date: 20220720
  Serious: No
  Sender: FDA-Public Use
  Company Number: US-NOVARTISTESTPH-NVSC2022US103698

PATIENT
  Sex: Female

DRUGS (1)
  1. KESIMPTA [Suspect]
     Active Substance: OFATUMUMAB
     Indication: Multiple sclerosis
     Dosage: 20 MG, FREQUENCY: ONE SINGLE DOSE
     Route: 058
     Dates: start: 20220503

REACTIONS (3)
  - Chills [Recovering/Resolving]
  - Gait inability [Recovering/Resolving]
  - Headache [Unknown]
